FAERS Safety Report 7087855-X (Version None)
Quarter: 2010Q4

REPORT INFORMATION
  Report Type: 
  Country: None (occurrence: None)
  Receive Date: 20101108
  Receipt Date: 20101028
  Transmission Date: 20110411
  Serious: Yes (Hospitalization, Other)
  Sender: FDA-Public Use
  Company Number: US-ASTRAZENECA-2010SE51169

PATIENT
  Age: 87 Year
  Sex: Female

DRUGS (2)
  1. TENORMIN [Suspect]
     Indication: HYPERTENSION
     Route: 048
     Dates: start: 19770101
  2. ATENOLOL [Suspect]
     Indication: HYPERTENSION
     Route: 065

REACTIONS (5)
  - BLOOD PRESSURE INCREASED [None]
  - CARDIAC PACEMAKER INSERTION [None]
  - DISCOMFORT [None]
  - DRUG INEFFECTIVE [None]
  - MYOCARDIAL INFARCTION [None]
